FAERS Safety Report 8731398 (Version 2)
Quarter: 2013Q1

REPORT INFORMATION
  Report Type: Spontaneous
  Country: CA (occurrence: CA)
  Receive Date: 20120820
  Receipt Date: 20130215
  Transmission Date: 20140127
  Serious: Yes (Other)
  Sender: FDA-Public Use
  Company Number: CA-JNJFOC-20120806638

PATIENT
  Age: 21 None
  Sex: Female
  Weight: 90 kg

DRUGS (2)
  1. STELARA [Suspect]
     Indication: PSORIASIS
     Dosage: FOR 8 MONTHS, 6 INJECTIONS TOTAL
     Route: 058
     Dates: start: 20111018
  2. TOPICORTE [Concomitant]
     Route: 065
     Dates: start: 20120813, end: 2013

REACTIONS (3)
  - Pustular psoriasis [Unknown]
  - Viral upper respiratory tract infection [Unknown]
  - Sinusitis [Recovered/Resolved]
